FAERS Safety Report 8124129-X (Version None)
Quarter: 2012Q1

REPORT INFORMATION
  Report Type: 
  Country: None (occurrence: None)
  Receive Date: 20120209
  Receipt Date: 20120125
  Transmission Date: 20120608
  Serious: Yes (Hospitalization)
  Sender: FDA-Public Use
  Company Number: NZ-TEVA-321109ISR

PATIENT
  Sex: Female
  Weight: 104.2 kg

DRUGS (1)
  1. WARFARIN SODIUM [Suspect]
     Indication: EMBOLISM VENOUS
     Route: 048
     Dates: start: 20081003

REACTIONS (4)
  - DUODENITIS [None]
  - MELAENA [None]
  - ABDOMINAL PAIN UPPER [None]
  - DYSPNOEA [None]
